FAERS Safety Report 23600252 (Version 1)
Quarter: 2024Q1

REPORT INFORMATION
  Report Type: Spontaneous
  Country: US (occurrence: None)
  Receive Date: 20240305
  Receipt Date: 20240305
  Transmission Date: 20240410
  Serious: No
  Sender: FDA-Public Use
  Company Number: None

PATIENT
  Sex: Male

DRUGS (1)
  1. ALTUVIIIO [Suspect]
     Active Substance: EFANESOCTOCOG ALFA
     Indication: Factor VIII deficiency
     Dosage: FREQUENCY : WEEKLY;?
     Route: 042
     Dates: start: 202305

REACTIONS (2)
  - Head injury [None]
  - Migraine [None]

NARRATIVE: CASE EVENT DATE: 20240209
